FAERS Safety Report 5952734-5 (Version None)
Quarter: 2008Q4

REPORT INFORMATION
  Report Type: 
  Country: None (occurrence: None)
  Receive Date: 20081114
  Receipt Date: 20081107
  Transmission Date: 20090506
  Serious: No
  Sender: FDA-Public Use
  Company Number: US-B.I. PHARMACEUTICALS,INC./RIDGEFIELD-2008-BP-16905BP

PATIENT
  Age: 74 Year
  Sex: Male

DRUGS (4)
  1. FLOMAX [Suspect]
     Indication: MICTURITION URGENCY
     Dosage: .4MG
     Route: 048
     Dates: start: 20000101
  2. ZOCOR [Suspect]
     Dates: start: 20081103
  3. PLAVIX [Suspect]
     Dates: start: 20081103
  4. METOPROLOL TARTRATE [Suspect]
     Dates: start: 20081103

REACTIONS (1)
  - DRUG INEFFECTIVE [None]
